FAERS Safety Report 18344386 (Version 1)
Quarter: 2020Q4

REPORT INFORMATION
  Report Type: Spontaneous
  Country: US (occurrence: US)
  Receive Date: 20201005
  Receipt Date: 20201005
  Transmission Date: 20210114
  Serious: Yes (Disabling, Other)
  Sender: FDA-Public Use
  Company Number: None

PATIENT
  Age: 35 Year
  Sex: Female
  Weight: 72 kg

DRUGS (4)
  1. NATURE-THROID [Suspect]
     Active Substance: THYROID, PORCINE
     Indication: BASEDOW^S DISEASE
     Dosage: ?          QUANTITY:45 TABLET(S);?
     Route: 048
     Dates: start: 20200112, end: 20200303
  2. NATURE-THROID [Suspect]
     Active Substance: THYROID, PORCINE
     Indication: HYPOTHYROIDISM
     Dosage: ?          QUANTITY:45 TABLET(S);?
     Route: 048
     Dates: start: 20200112, end: 20200303
  3. NATURE-THROID [Suspect]
     Active Substance: THYROID, PORCINE
     Indication: AUTOIMMUNE THYROIDITIS
     Dosage: ?          QUANTITY:45 TABLET(S);?
     Route: 048
     Dates: start: 20200112, end: 20200303
  4. LEVOTHYROXIN [Concomitant]
     Active Substance: LEVOTHYROXINE

REACTIONS (5)
  - Tooth loss [None]
  - Memory impairment [None]
  - Hypoaesthesia [None]
  - Monoparesis [None]
  - Weight increased [None]

NARRATIVE: CASE EVENT DATE: 20200120
